FAERS Safety Report 4487800-7 (Version None)
Quarter: 2004Q4

REPORT INFORMATION
  Report Type: 
  Country: None (occurrence: None)
  Receive Date: 20041027
  Receipt Date: 20041027
  Transmission Date: 20050328
  Serious: Yes (Disabling)
  Sender: FDA-Public Use
  Company Number: None

PATIENT
  Age: 36 Year
  Sex: Female
  Weight: 70.3075 kg

DRUGS (1)
  1. RISPERDAL [Suspect]
     Indication: MOOD SWINGS
     Dosage: 2 MG
     Dates: start: 19941004

REACTIONS (1)
  - DIABETES MELLITUS [None]
